FAERS Safety Report 10297076 (Version 2)
Quarter: 2014Q3

REPORT INFORMATION
  Report Type: Report from Study
  Country: US (occurrence: US)
  Receive Date: 20140711
  Receipt Date: 20140711
  Transmission Date: 20150326
  Serious: Yes (Hospitalization)
  Sender: FDA-Public Use
  Company Number: US-BIOGENIDEC-195919

PATIENT
  Age: 46 Year
  Sex: Female
  Weight: 92 kg

DRUGS (12)
  1. TIZANIDINE [Concomitant]
     Active Substance: TIZANIDINE
     Indication: PAIN
  2. DESIPRAMINE [Concomitant]
     Active Substance: DESIPRAMINE
     Indication: PAIN
  3. ROXICET [Concomitant]
     Active Substance: ACETAMINOPHEN\OXYCODONE HYDROCHLORIDE
     Indication: BACK PAIN
  4. METHADONE [Concomitant]
     Active Substance: METHADONE HYDROCHLORIDE
     Indication: PAIN
     Dates: start: 2003
  5. DIAZEPAM. [Concomitant]
     Active Substance: DIAZEPAM
     Indication: MUSCLE SPASMS
  6. HYDROCHLOROTHIAZIDE. [Concomitant]
     Active Substance: HYDROCHLOROTHIAZIDE
     Indication: FLUID RETENTION
     Dates: start: 2003
  7. LEXAPRO [Concomitant]
     Active Substance: ESCITALOPRAM OXALATE
     Indication: DEPRESSION
  8. AVONEX [Suspect]
     Active Substance: INTERFERON BETA-1A
     Indication: MULTIPLE SCLEROSIS
     Route: 030
     Dates: start: 20040201, end: 20080601
  9. CARBAMAZEPINE. [Concomitant]
     Active Substance: CARBAMAZEPINE
  10. ZESTRIL [Concomitant]
     Active Substance: LISINOPRIL
     Indication: BLOOD PRESSURE
  11. CLONIDINE. [Concomitant]
     Active Substance: CLONIDINE
     Indication: BLOOD PRESSURE
     Dates: start: 2004
  12. NICODERM CQ [Concomitant]
     Active Substance: NICOTINE
     Indication: EX-TOBACCO USER
     Dates: start: 20040401, end: 20040422

REACTIONS (3)
  - Back disorder [Unknown]
  - Arthralgia [Recovered/Resolved]
  - Joint dislocation [Recovered/Resolved]

NARRATIVE: CASE EVENT DATE: 20040308
